FAERS Safety Report 8428322-8 (Version None)
Quarter: 2012Q2

REPORT INFORMATION
  Report Type: 
  Country: None (occurrence: None)
  Receive Date: 20120611
  Receipt Date: 20120606
  Transmission Date: 20120825
  Serious: Yes (Other)
  Sender: FDA-Public Use
  Company Number: US-AMGEN-USASP2012035521

PATIENT
  Age: 88 Year
  Sex: Female

DRUGS (2)
  1. PROLIA [Suspect]
     Indication: OSTEOPOROSIS POSTMENOPAUSAL
  2. GABAPENTIN [Concomitant]
     Dosage: UNK

REACTIONS (7)
  - VASCULITIS [None]
  - SLEEP DISORDER [None]
  - POLLAKIURIA [None]
  - SKIN LESION [None]
  - NEURALGIA [None]
  - CERUMEN IMPACTION [None]
  - OEDEMA PERIPHERAL [None]
